FAERS Safety Report 6602264-2 (Version None)
Quarter: 2010Q1

REPORT INFORMATION
  Report Type: 
  Country: None (occurrence: None)
  Receive Date: 20100225
  Receipt Date: 20100217
  Transmission Date: 20100710
  Serious: Yes (Congenital Anomaly)
  Sender: FDA-Public Use
  Company Number: FR-WYE-G05583910

PATIENT
  Sex: Male
  Weight: 2.5 kg

DRUGS (1)
  1. EFFEXOR [Suspect]
     Indication: GENERALISED ANXIETY DISORDER
     Dosage: 37.5 MG 1 TIME EVERY 2 OR 3 DAYS
     Route: 064
     Dates: start: 20031101

REACTIONS (5)
  - FEEDING DISORDER NEONATAL [None]
  - GASTROOESOPHAGEAL REFLUX DISEASE [None]
  - NEONATAL DISORDER [None]
  - PREMATURE BABY [None]
  - PYLORIC STENOSIS [None]
